FAERS Safety Report 15702972 (Version 1)
Quarter: 2018Q4

REPORT INFORMATION
  Report Type: Spontaneous
  Country: US (occurrence: US)
  Receive Date: 20181208
  Receipt Date: 20181208
  Transmission Date: 20190205
  Serious: Yes (Life-Threatening, Hospitalization, Other)
  Sender: FDA-Public Use
  Company Number: None

PATIENT
  Age: 43 Year
  Sex: Male
  Weight: 172 kg

DRUGS (9)
  1. SACUBITRIL/VALSARTAN [Suspect]
     Active Substance: SACUBITRIL\VALSARTAN
     Indication: CARDIAC FAILURE CONGESTIVE
     Route: 048
     Dates: start: 20181006, end: 20181130
  2. RIVAROXABAN 20MG PO DAILY [Concomitant]
  3. POTASSIUM CHLORIDE SA 20MEQ PO DAILY [Concomitant]
  4. CARVEDILOL 12.5MG PO BID [Concomitant]
  5. BUMETANIDE 1MG PO BID [Concomitant]
  6. CLONAZEPAME 0.5MG PO BID PRN ANXIETY [Concomitant]
  7. ONDANSETRON ODT 8MG PO Q8HOURS PRN NAUSEA [Concomitant]
  8. DILTIAZEM 180MG (24 HOUR) PO DAILY [Concomitant]
  9. FLUOXETINE 40MG PO DAILY [Concomitant]

REACTIONS (4)
  - Cholestatic liver injury [None]
  - Dizziness postural [None]
  - Drug-induced liver injury [None]
  - Hypotension [None]

NARRATIVE: CASE EVENT DATE: 20181206
